FAERS Safety Report 21012386 (Version 2)
Quarter: 2022Q3

REPORT INFORMATION
  Report Type: Spontaneous
  Country: US (occurrence: US)
  Receive Date: 20220627
  Receipt Date: 20220928
  Transmission Date: 20221026
  Serious: Yes (Other)
  Sender: FDA-Public Use
  Company Number: US-BRISTOL-MYERS SQUIBB COMPANY-2022-058075

PATIENT
  Age: 86 Year
  Sex: Female

DRUGS (4)
  1. REVLIMID [Suspect]
     Active Substance: LENALIDOMIDE
     Indication: Plasma cell myeloma
     Dosage: 10 MILLIGRAM, OTHER
     Route: 048
     Dates: start: 20220523
  2. LETROZOLE [Concomitant]
     Active Substance: LETROZOLE
  3. VALACYCLOVIR [Concomitant]
     Active Substance: VALACYCLOVIR HYDROCHLORIDE
  4. ASPIRIN [Concomitant]
     Active Substance: ASPIRIN

REACTIONS (6)
  - Rash [Recovered/Resolved]
  - Breast cancer [Unknown]
  - Anxiety [Unknown]
  - Abdominal distension [Unknown]
  - Abdominal discomfort [Unknown]
  - Abdominal pain [Unknown]

NARRATIVE: CASE EVENT DATE: 20220613
